FAERS Safety Report 6472550-8 (Version None)
Quarter: 2009Q4

REPORT INFORMATION
  Report Type: 
  Country: None (occurrence: None)
  Receive Date: 20091130
  Receipt Date: 20091110
  Transmission Date: 20100525
  Serious: Yes (Hospitalization)
  Sender: FDA-Public Use
  Company Number: A-CH2009-29813

PATIENT
  Age: 46 Year
  Sex: Female

DRUGS (2)
  1. TRACLEER [Suspect]
     Indication: PULMONARY ARTERIAL HYPERTENSION
     Dosage: ORAL
     Route: 048
     Dates: start: 20090930
  2. REVATIO [Suspect]
     Dosage: 20 MG, ORAL
     Route: 048
     Dates: start: 20090930, end: 20091002

REACTIONS (4)
  - DIARRHOEA [None]
  - HEADACHE [None]
  - NAUSEA [None]
  - VOMITING [None]
